FAERS Safety Report 20374021 (Version 1)
Quarter: 2022Q1

REPORT INFORMATION
  Report Type: Spontaneous
  Country: US (occurrence: None)
  Receive Date: 20220124
  Receipt Date: 20220124
  Transmission Date: 20220423
  Serious: Yes (Disabling)
  Sender: FDA-Public Use
  Company Number: None

PATIENT
  Age: 72 Year
  Sex: Female
  Weight: 63 kg

DRUGS (1)
  1. BAMLANIVIMAB\ETESEVIMAB [Suspect]
     Active Substance: BAMLANIVIMAB\ETESEVIMAB
     Indication: Coronavirus test positive
     Dosage: OTHER FREQUENCY : ONE TIME;?
     Route: 042

REACTIONS (5)
  - Alopecia [None]
  - Hair texture abnormal [None]
  - Trichorrhexis [None]
  - Madarosis [None]
  - Madarosis [None]

NARRATIVE: CASE EVENT DATE: 20211210
